FAERS Safety Report 20756722 (Version 1)
Quarter: 2022Q2

REPORT INFORMATION
  Report Type: Spontaneous
  Country: NO (occurrence: NO)
  Receive Date: 20220427
  Receipt Date: 20220427
  Transmission Date: 20220721
  Serious: Yes (Life-Threatening, Hospitalization, Other)
  Sender: FDA-Public Use
  Company Number: None

PATIENT
  Age: 23 Year
  Sex: Female
  Weight: 79 kg

DRUGS (2)
  1. HYRIMOZ [Suspect]
     Active Substance: ADALIMUMAB-ADAZ
     Indication: Colitis ulcerative
     Dosage: 40 MG BIW
     Route: 058
     Dates: start: 202005, end: 202103
  2. SILFLAM [Concomitant]
     Indication: Colitis ulcerative
     Dosage: 3 G QD
     Route: 065
     Dates: start: 20200306

REACTIONS (10)
  - Obsessive-compulsive disorder [Recovered/Resolved with Sequelae]
  - Panic disorder [Recovered/Resolved with Sequelae]
  - Anxiety disorder due to a general medical condition [Unknown]
  - Depression [Recovered/Resolved with Sequelae]
  - Self-injurious ideation [Unknown]
  - Suicidal ideation [Recovered/Resolved with Sequelae]
  - Psychomotor hyperactivity [Unknown]
  - Tachyphrenia [Unknown]
  - Obsessive thoughts [Recovered/Resolved with Sequelae]
  - Depressed mood [Unknown]

NARRATIVE: CASE EVENT DATE: 20200601
